FAERS Safety Report 6388621-0 (Version None)
Quarter: 2009Q4

REPORT INFORMATION
  Report Type: 
  Country: None (occurrence: None)
  Receive Date: 20091005
  Receipt Date: 20090923
  Transmission Date: 20100525
  Serious: Yes (Other)
  Sender: FDA-Public Use
  Company Number: US-WYE-H11186009

PATIENT
  Sex: Male
  Weight: 74.91 kg

DRUGS (10)
  1. PRISTIQ [Suspect]
     Indication: DEPRESSION
     Route: 048
     Dates: start: 20090701
  2. SOMA [Concomitant]
  3. LISINOPRIL [Concomitant]
     Indication: HYPERTENSION
  4. SEPTRA [Concomitant]
     Indication: STAPHYLOCOCCAL INFECTION
     Dosage: UNKNOWN
     Dates: start: 20090916
  5. PROVIGIL [Concomitant]
  6. ALPRAZOLAM [Concomitant]
     Indication: ANXIETY
  7. CELEXA [Concomitant]
     Indication: DEPRESSION
     Dosage: UNKNOWN START DATE 60 MG DAILY, THEN TAPERED OFF AFTER STARTING PRISTIQ
     Dates: end: 20090719
  8. LEVAQUIN [Interacting]
     Indication: STAPHYLOCOCCAL INFECTION
     Dates: start: 20090910, end: 20090915
  9. SUBOXONE [Concomitant]
     Indication: PAIN
  10. NEXIUM [Concomitant]

REACTIONS (10)
  - CONDITION AGGRAVATED [None]
  - DECREASED APPETITE [None]
  - DEPRESSION [None]
  - DRUG INEFFECTIVE [None]
  - DRUG INTERACTION [None]
  - EATING DISORDER [None]
  - HYPOAESTHESIA [None]
  - STAPHYLOCOCCAL INFECTION [None]
  - TOOTHACHE [None]
  - WEIGHT DECREASED [None]
